FAERS Safety Report 11360577 (Version 1)
Quarter: 2015Q3

REPORT INFORMATION
  Report Type: Report from Study
  Country: US (occurrence: US)
  Receive Date: 20150810
  Receipt Date: 20150810
  Transmission Date: 20151125
  Serious: Yes (Other)
  Sender: FDA-Public Use
  Company Number: PHEH2015US011246

PATIENT
  Sex: Female

DRUGS (1)
  1. EXTAVIA [Suspect]
     Active Substance: INTERFERON BETA-1B
     Indication: MULTIPLE SCLEROSIS
     Dosage: 0.25 MG (1 ML), EVERY OTHER DAY
     Route: 058
     Dates: start: 20150227, end: 20150604

REACTIONS (2)
  - Multiple sclerosis relapse [Unknown]
  - Central nervous system lesion [Unknown]
